FAERS Safety Report 10231789 (Version 2)
Quarter: 2014Q2

REPORT INFORMATION
  Report Type: Spontaneous
  Country: IT (occurrence: IT)
  Receive Date: 20140612
  Receipt Date: 20140612
  Transmission Date: 20141212
  Serious: Yes (Death, Life-Threatening)
  Sender: FDA-Public Use
  Company Number: PHHY2014IT068640

PATIENT
  Age: 69 Year
  Sex: Male

DRUGS (3)
  1. RIBAVIRIN [Suspect]
     Indication: ANTIVIRAL TREATMENT
     Dosage: 1 G, QD
     Route: 048
     Dates: start: 20140325, end: 20140503
  2. INCIVO [Suspect]
     Indication: ANTIVIRAL TREATMENT
     Dosage: 2250 MG, QD
     Route: 048
     Dates: start: 20140325, end: 20140503
  3. PEGINTERFERON LAMBDA-1A [Suspect]
     Indication: ANTIVIRAL TREATMENT
     Dosage: 1 DF, QW
     Route: 058
     Dates: start: 20140325, end: 20140503

REACTIONS (7)
  - Ascites [Fatal]
  - Cholestasis [Fatal]
  - Hepatic failure [Fatal]
  - Rash [Fatal]
  - Encephalopathy [Fatal]
  - Pyrexia [Fatal]
  - Jaundice [Fatal]
